FAERS Safety Report 11988702 (Version 3)
Quarter: 2016Q1

REPORT INFORMATION
  Report Type: Report from Study
  Country: CA (occurrence: CA)
  Receive Date: 20160202
  Receipt Date: 20160331
  Transmission Date: 20160526
  Serious: Yes (Hospitalization)
  Sender: FDA-Public Use
  Company Number: PHHY2015CA134928

PATIENT
  Sex: Female

DRUGS (2)
  1. ILARIS [Suspect]
     Active Substance: CANAKINUMAB
     Indication: CRYOPYRIN ASSOCIATED PERIODIC SYNDROME
     Dosage: 150 MG, D0,  Q8 WEEKS
     Route: 058
     Dates: start: 20151005
  2. ILARIS [Suspect]
     Active Substance: CANAKINUMAB
     Dosage: UNK
     Route: 058
     Dates: start: 20160328

REACTIONS (13)
  - Confusional state [Unknown]
  - Poor quality sleep [Unknown]
  - Red blood cell morphology abnormal [Unknown]
  - Eye colour change [Unknown]
  - Hallucination [Unknown]
  - Memory impairment [Unknown]
  - Fatigue [Unknown]
  - Anxiety [Unknown]
  - Loss of consciousness [Unknown]
  - Stress [Unknown]
  - Pneumonia [Unknown]
  - Hot flush [Unknown]
  - Muscle spasms [Unknown]

NARRATIVE: CASE EVENT DATE: 2015
